FAERS Safety Report 5109004-7 (Version None)
Quarter: 2006Q3

REPORT INFORMATION
  Report Type: 
  Country: None (occurrence: None)
  Receive Date: 20060920
  Receipt Date: 20060825
  Transmission Date: 20061208
  Serious: Yes (Hospitalization)
  Sender: FDA-Public Use
  Company Number: US-AMGEN-US191281

PATIENT
  Sex: Female
  Weight: 64.5 kg

DRUGS (10)
  1. ENBREL [Suspect]
     Indication: RHEUMATOID ARTHRITIS
     Route: 058
     Dates: start: 20020206, end: 20060529
  2. RESTORIL [Suspect]
  3. PREMARIN [Suspect]
  4. METHOTREXATE [Concomitant]
  5. CELEXA [Concomitant]
  6. CELEBREX [Concomitant]
  7. PREDNISONE [Concomitant]
  8. FOLIC ACID [Concomitant]
  9. TYLENOL [Concomitant]
  10. METOPROLOL [Concomitant]

REACTIONS (2)
  - APHASIA [None]
  - CEREBROVASCULAR ACCIDENT [None]
